FAERS Safety Report 19810089 (Version 1)
Quarter: 2021Q3

REPORT INFORMATION
  Report Type: Spontaneous
  Country: US (occurrence: US)
  Receive Date: 20210903
  Receipt Date: 20210903
  Transmission Date: 20211014
  Serious: No
  Sender: FDA-Public Use
  Company Number: None

PATIENT
  Sex: Male

DRUGS (2)
  1. CAPECITABINE 500MG NOVADOZ PHARMACEUTICALS [Suspect]
     Active Substance: CAPECITABINE
     Dosage: ?          OTHER FREQUENCY:AM DAYS 1 TO 14;?
     Route: 048
     Dates: start: 202105
  2. CAPECITABINE 500MG NOVADOZ PHARMACEUTICALS [Suspect]
     Active Substance: CAPECITABINE
     Indication: BREAST CANCER MALE
     Dosage: ?          OTHER FREQUENCY:EVENING DAYS 1?14;?
     Route: 048
     Dates: start: 202105

REACTIONS (3)
  - Palmar-plantar erythrodysaesthesia syndrome [None]
  - Loss of personal independence in daily activities [None]
  - Diarrhoea [None]
